FAERS Safety Report 17743542 (Version 1)
Quarter: 2020Q2

REPORT INFORMATION
  Report Type: Spontaneous
  Country: US (occurrence: US)
  Receive Date: 20200505
  Receipt Date: 20200505
  Transmission Date: 20200714
  Serious: No
  Sender: FDA-Public Use
  Company Number: US-SPECGX-T202000226

PATIENT
  Age: 32 Year
  Sex: Male
  Weight: 64 kg

DRUGS (2)
  1. NALTREXONE [Suspect]
     Active Substance: NALTREXONE
     Indication: DRUG USE DISORDER
     Dosage: 50 MILLIGRAM, UNK
     Route: 065
     Dates: start: 20200109, end: 202001
  2. NALTREXONE [Suspect]
     Active Substance: NALTREXONE
     Dosage: 25 MILLIGRAM, UNK
     Route: 065
     Dates: start: 20200112

REACTIONS (3)
  - Palpitations [Not Recovered/Not Resolved]
  - Wrong technique in product usage process [Not Recovered/Not Resolved]
  - Burning sensation [Not Recovered/Not Resolved]

NARRATIVE: CASE EVENT DATE: 202001
